FAERS Safety Report 4362935-8 (Version None)
Quarter: 2004Q2

REPORT INFORMATION
  Report Type: 
  Country: None (occurrence: None)
  Receive Date: 20040518
  Receipt Date: 20040511
  Transmission Date: 20050107
  Serious: Yes (Life-Threatening)
  Sender: FDA-Public Use
  Company Number: 2004CG00911

PATIENT
  Age: 65 Year
  Sex: Female

DRUGS (6)
  1. MOPRAL [Suspect]
     Dosage: 20 MG DAILY PO
     Route: 048
     Dates: start: 20031214
  2. LEXOMIL [Suspect]
     Dosage: 1 DF DAILY PO
     Route: 048
     Dates: start: 20031222
  3. PROZAC [Suspect]
     Dates: start: 20031224
  4. ZOLPIDEM TARTRATE [Suspect]
     Dosage: 10 MG DAILY PO
     Route: 048
     Dates: start: 20031222
  5. LOXEN [Suspect]
     Indication: ESSENTIAL HYPERTENSION
     Dosage: 20 MG DAILY PO
     Route: 048
     Dates: start: 20040102
  6. TAZOCILLINE [Suspect]
     Indication: PERITONITIS
     Dosage: 4 G QID IV
     Route: 042
     Dates: start: 20031205

REACTIONS (7)
  - CHOLESTASIS [None]
  - EOSINOPHILIA [None]
  - ERYTHEMA MULTIFORME [None]
  - HENOCH-SCHONLEIN PURPURA [None]
  - LYMPHADENOPATHY [None]
  - PRURITUS [None]
  - PYREXIA [None]
